FAERS Safety Report 24355178 (Version 2)
Quarter: 2024Q4

REPORT INFORMATION
  Report Type: Report from Study
  Country: CA (occurrence: CA)
  Receive Date: 20240924
  Receipt Date: 20241001
  Transmission Date: 20250114
  Serious: Yes (Hospitalization)
  Sender: ABBVIE
  Company Number: CA-ABBVIE-5932264

PATIENT
  Age: 36 Year
  Sex: Female

DRUGS (1)
  1. RINVOQ [Suspect]
     Active Substance: UPADACITINIB
     Indication: Crohn^s disease
     Route: 048
     Dates: start: 20240516

REACTIONS (14)
  - Pyrexia [Unknown]
  - Cyanosis [Unknown]
  - Cough [Unknown]
  - Fatigue [Unknown]
  - Chills [Unknown]
  - Pain [Unknown]
  - Migraine [Unknown]
  - Dehydration [Unknown]
  - Headache [Unknown]
  - Unevaluable event [Unknown]
  - Nausea [Unknown]
  - Head discomfort [Unknown]
  - Nasal oedema [Not Recovered/Not Resolved]
  - Nasal disorder [Not Recovered/Not Resolved]

NARRATIVE: CASE EVENT DATE: 20240101
